FAERS Safety Report 22250507 (Version 1)
Quarter: 2023Q2

REPORT INFORMATION
  Report Type: Spontaneous
  Country: CA (occurrence: CA)
  Receive Date: 20230425
  Receipt Date: 20230425
  Transmission Date: 20230722
  Serious: Yes (Death, Other)
  Sender: FDA-Public Use
  Company Number: CA-PFIZER INC-0007233810PHAMED

PATIENT
  Age: 64 Year
  Sex: Female

DRUGS (3)
  1. TRIAZOLAM [Suspect]
     Active Substance: TRIAZOLAM
     Dosage: UNK
     Route: 048
  2. DIFLUNISAL [Suspect]
     Active Substance: DIFLUNISAL
     Dosage: UNK
  3. ACETONE [Suspect]
     Active Substance: ACETONE
     Dosage: UNK

REACTIONS (1)
  - Death [Fatal]
